FAERS Safety Report 12374976 (Version 1)
Quarter: 2016Q2

REPORT INFORMATION
  Report Type: Spontaneous
  Country: US (occurrence: None)
  Receive Date: 20160516
  Receipt Date: 20160516
  Transmission Date: 20160815
  Serious: Yes (Hospitalization)
  Sender: FDA-Public Use
  Company Number: None

PATIENT
  Age: 67 Year
  Sex: Female
  Weight: 91.4 kg

DRUGS (1)
  1. LISINOPRIL. [Suspect]
     Active Substance: LISINOPRIL
     Dosage: MG EVERY DAY PO
     Route: 048
     Dates: start: 20160419

REACTIONS (2)
  - International normalised ratio increased [None]
  - Angioedema [None]

NARRATIVE: CASE EVENT DATE: 20160419
